FAERS Safety Report 8304396-X (Version None)
Quarter: 2012Q2

REPORT INFORMATION
  Report Type: 
  Country: None (occurrence: None)
  Receive Date: 20120423
  Receipt Date: 20120417
  Transmission Date: 20120825
  Serious: No
  Sender: FDA-Public Use
  Company Number: US-PFIZER INC-2012094917

PATIENT
  Sex: Female

DRUGS (1)
  1. SUTENT [Suspect]
     Indication: RENAL FAILURE CHRONIC
     Dosage: DAILY 4 WEEKS ON AND 2 WEEKS

REACTIONS (1)
  - DRUG INTOLERANCE [None]
